FAERS Safety Report 23333541 (Version 1)
Quarter: 2023Q4

REPORT INFORMATION
  Report Type: Spontaneous
  Country: US (occurrence: US)
  Receive Date: 20231222
  Receipt Date: 20231222
  Transmission Date: 20240110
  Serious: No
  Sender: FDA-Public Use
  Company Number: US-CTI BIOPHARMA-2023US04227

PATIENT

DRUGS (10)
  1. VONJO [Suspect]
     Active Substance: PACRITINIB
     Indication: Myelofibrosis
     Dosage: 200 MG, BID
     Route: 048
     Dates: start: 20231018
  2. ALPRAZOLAM [Concomitant]
     Active Substance: ALPRAZOLAM
  3. NORVASC [Concomitant]
     Active Substance: AMLODIPINE BESYLATE
  4. COZAAR [Concomitant]
     Active Substance: LOSARTAN POTASSIUM
  5. METOPROLOL SUCCINATE [Concomitant]
     Active Substance: METOPROLOL SUCCINATE
  6. TYLENOL [Concomitant]
     Active Substance: ACETAMINOPHEN
  7. MIRTAZAPINE [Concomitant]
     Active Substance: MIRTAZAPINE
  8. ACETAZOLAMIDE [Concomitant]
     Active Substance: ACETAZOLAMIDE
  9. CHOLECALCIFEROL [Concomitant]
     Active Substance: CHOLECALCIFEROL
  10. LUTEIN [Concomitant]
     Active Substance: LUTEIN

REACTIONS (3)
  - Systemic infection [Not Recovered/Not Resolved]
  - Fatigue [Not Recovered/Not Resolved]
  - Diarrhoea [Not Recovered/Not Resolved]
